FAERS Safety Report 20072433 (Version 1)
Quarter: 2021Q4

REPORT INFORMATION
  Report Type: Other
  Country: DE (occurrence: None)
  Receive Date: 20211116
  Receipt Date: 20211116
  Transmission Date: 20220303
  Serious: Yes (Death, Hospitalization, Other)
  Sender: FDA-Public Use
  Company Number: DE-Laurus-001156

PATIENT
  Age: 56 Year
  Sex: Male

DRUGS (1)
  1. METFORMIN [Suspect]
     Active Substance: METFORMIN HYDROCHLORIDE
     Indication: Type 2 diabetes mellitus

REACTIONS (5)
  - Lactic acidosis [Fatal]
  - Toxicity to various agents [Unknown]
  - Cardiac arrest [Fatal]
  - Condition aggravated [Fatal]
  - Circulatory collapse [Fatal]
